FAERS Safety Report 23015912 (Version 7)
Quarter: 2023Q4

REPORT INFORMATION
  Report Type: Spontaneous
  Country: US (occurrence: US)
  Receive Date: 20231002
  Receipt Date: 20231228
  Transmission Date: 20240110
  Serious: Yes (Hospitalization, Other)
  Sender: FDA-Public Use
  Company Number: US-KARYOPHARM-2023KPT001906

PATIENT

DRUGS (15)
  1. XPOVIO [Suspect]
     Active Substance: SELINEXOR
     Indication: Brain neoplasm malignant
     Dosage: 60 MG, WEEKLY
     Route: 048
     Dates: start: 20230906, end: 20231128
  2. XPOVIO [Suspect]
     Active Substance: SELINEXOR
     Indication: Hydrocephalus
  3. AMMONIUM ACETATE [Concomitant]
     Active Substance: AMMONIUM ACETATE
  4. BACTRIM [Concomitant]
     Active Substance: SULFAMETHOXAZOLE\TRIMETHOPRIM
  5. DEXAMETHASONE [Concomitant]
     Active Substance: DEXAMETHASONE
  6. GABAPENTIN [Concomitant]
     Active Substance: GABAPENTIN
  7. HEPARIN [Concomitant]
     Active Substance: HEPARIN SODIUM
  8. OXYCODONE [Concomitant]
     Active Substance: OXYCODONE
  9. RITALIN [Concomitant]
     Active Substance: METHYLPHENIDATE HYDROCHLORIDE
  10. TRAZODONE [Concomitant]
     Active Substance: TRAZODONE HYDROCHLORIDE
  11. VIMPAT [Concomitant]
     Active Substance: LACOSAMIDE
  12. ZOLOFT [Concomitant]
     Active Substance: SERTRALINE HYDROCHLORIDE
  13. FLUDROCORTISONE [Concomitant]
     Active Substance: FLUDROCORTISONE
  14. FLUOXETINE [Concomitant]
     Active Substance: FLUOXETINE HYDROCHLORIDE
  15. MIDODRINE [Concomitant]
     Active Substance: MIDODRINE

REACTIONS (20)
  - Brain oedema [Unknown]
  - Renal impairment [Unknown]
  - Hepatic enzyme abnormal [Unknown]
  - Dehydration [Unknown]
  - White blood cell count decreased [Not Recovered/Not Resolved]
  - Hypotension [Unknown]
  - Productive cough [Unknown]
  - Flushing [Not Recovered/Not Resolved]
  - Eye movement disorder [Unknown]
  - Central nervous system lesion [Unknown]
  - Disorganised speech [Unknown]
  - Face oedema [Unknown]
  - Diarrhoea [Unknown]
  - Platelet count decreased [Unknown]
  - Haemoglobin decreased [Unknown]
  - Urinary tract infection [Not Recovered/Not Resolved]
  - Vision blurred [Unknown]
  - Fatigue [Unknown]
  - Pyrexia [Unknown]
  - Off label use [Unknown]

NARRATIVE: CASE EVENT DATE: 20230101
